FAERS Safety Report 8788904 (Version 2)
Quarter: 2014Q2

REPORT INFORMATION
  Report Type: Spontaneous
  Country: US (occurrence: US)
  Receive Date: 20120917
  Receipt Date: 20131024
  Transmission Date: 20141212
  Serious: No
  Sender: FDA-Public Use
  Company Number: US-PFIZER INC-2012227002

PATIENT
  Sex: Female

DRUGS (4)
  1. NORVASC [Suspect]
     Dosage: 5 MG, 2X/DAY
     Dates: start: 201203
  2. LOSARTAN POTASSIUM [Suspect]
     Dosage: UNK
     Dates: start: 201203
  3. LEVOTHYROXINE SODIUM [Suspect]
     Dosage: UNK
  4. CRESTOR [Suspect]
     Dosage: UNK
     Dates: start: 201203

REACTIONS (1)
  - Alopecia [Not Recovered/Not Resolved]
